FAERS Safety Report 9295905 (Version 7)
Quarter: 2015Q2

REPORT INFORMATION
  Report Type: Spontaneous
  Country: US (occurrence: US)
  Receive Date: 20130517
  Receipt Date: 20150619
  Transmission Date: 20150821
  Serious: Yes (Hospitalization, Other)
  Sender: FDA-Public Use
  Company Number: US-009507513-1305USA007052

PATIENT
  Sex: Female
  Weight: 78.5 kg

DRUGS (6)
  1. GLYBURIDE (+) METFORMIN HYDROCHLORIDE [Concomitant]
     Indication: DIABETES MELLITUS
     Dosage: UNK
     Dates: start: 200405
  2. LIPITOR [Concomitant]
     Active Substance: ATORVASTATIN CALCIUM
     Indication: DIABETES MELLITUS
     Dosage: 20 MG, HS
     Dates: start: 2003
  3. ALENDRONATE SODIUM. [Suspect]
     Active Substance: ALENDRONATE SODIUM
     Dosage: 70 MG, UNK
  4. FOSAMAX [Suspect]
     Active Substance: ALENDRONATE SODIUM
     Indication: OSTEOPENIA
     Dosage: 70 MG, UNKNOWN
     Route: 048
     Dates: start: 20031031, end: 20110506
  5. LISINOPRIL. [Concomitant]
     Active Substance: LISINOPRIL
     Indication: DIABETES MELLITUS
     Dosage: 5 DF, QD
     Dates: start: 200408
  6. ACTOS [Concomitant]
     Active Substance: PIOGLITAZONE HYDROCHLORIDE
     Indication: DIABETES MELLITUS
     Dosage: 30 MG, QD
     Dates: start: 200507, end: 201003

REACTIONS (40)
  - Malnutrition [Unknown]
  - Atelectasis [Recovered/Resolved]
  - Cholecystectomy [Unknown]
  - Anaemia postoperative [Unknown]
  - Cholelithiasis [Unknown]
  - Hypophosphataemia [Unknown]
  - Ankle operation [Unknown]
  - Peripheral vascular disorder [Unknown]
  - Osteoarthritis [Unknown]
  - Arthritis [Unknown]
  - Intramedullary rod insertion [Unknown]
  - Hypokalaemia [Unknown]
  - Hypoalbuminaemia [Unknown]
  - Femur fracture [Unknown]
  - Vitamin D deficiency [Unknown]
  - Hypothyroidism [Unknown]
  - Osteoporosis [Unknown]
  - Oedema peripheral [Unknown]
  - Acute kidney injury [Unknown]
  - Atrial fibrillation [Recovered/Resolved]
  - Pleural effusion [Recovered/Resolved]
  - Femur fracture [Recovering/Resolving]
  - Soft tissue infection [Unknown]
  - Varicose vein operation [Unknown]
  - Hypovolaemia [Unknown]
  - Hypotension [Unknown]
  - Blood glucose increased [Unknown]
  - Diarrhoea [Recovering/Resolving]
  - Procedural nausea [Unknown]
  - Hypertension [Unknown]
  - Bone lesion [Unknown]
  - Eye laser surgery [Unknown]
  - Intramedullary rod insertion [Unknown]
  - Femur fracture [Recovering/Resolving]
  - White blood cell count increased [Unknown]
  - Hernia repair [Unknown]
  - Headache [Unknown]
  - Pancreatitis [Unknown]
  - Hypercholesterolaemia [Unknown]
  - Vertebral foraminal stenosis [Unknown]

NARRATIVE: CASE EVENT DATE: 20050610
